FAERS Safety Report 8414917-4 (Version None)
Quarter: 2012Q2

REPORT INFORMATION
  Report Type: 
  Country: None (occurrence: None)
  Receive Date: 20120601
  Receipt Date: 20120601
  Transmission Date: 20120825
  Serious: Yes (Other)
  Sender: FDA-Public Use
  Company Number: None

PATIENT
  Age: 44 Year
  Sex: Female
  Weight: 99.3377 kg

DRUGS (1)
  1. SAPHRIS [Suspect]
     Indication: SCHIZOPHRENIA
     Dosage: 5MG 2XDAY SL
     Route: 060
     Dates: start: 20120226, end: 20120228

REACTIONS (3)
  - CHEST PAIN [None]
  - HYPERHIDROSIS [None]
  - NAUSEA [None]
